FAERS Safety Report 9147219 (Version 3)
Quarter: 2013Q1

REPORT INFORMATION
  Report Type: Report from Study
  Country: AU (occurrence: AU)
  Receive Date: 20130307
  Receipt Date: 20130328
  Transmission Date: 20140127
  Serious: Yes (Other)
  Sender: FDA-Public Use
  Company Number: AU-ROCHE-1198616

PATIENT
  Sex: Male

DRUGS (4)
  1. LUCENTIS [Suspect]
     Indication: AGE-RELATED MACULAR DEGENERATION
     Dosage: IN LEFT EYE
     Route: 050
     Dates: start: 2007
  2. LUCENTIS [Suspect]
     Dosage: IN LEFT EYE
     Route: 050
  3. LUCENTIS [Suspect]
     Dosage: IN LEFT EYE
     Route: 050
     Dates: start: 201302, end: 201302
  4. LUCENTIS [Suspect]
     Dosage: IN RIGHT EYE
     Route: 050

REACTIONS (5)
  - Age-related macular degeneration [Unknown]
  - Ocular hyperaemia [Unknown]
  - Motion sickness [Unknown]
  - Visual acuity reduced [Unknown]
  - Injection site pain [Recovered/Resolved]
